FAERS Safety Report 10249841 (Version 2)
Quarter: 2014Q4

REPORT INFORMATION
  Report Type: Spontaneous
  Country: US (occurrence: US)
  Receive Date: 20140620
  Receipt Date: 20141027
  Transmission Date: 20150528
  Serious: Yes (Hospitalization, Other)
  Sender: FDA-Public Use
  Company Number: US-BAYER-2014-088074

PATIENT
  Age: 64 Year
  Sex: Male
  Weight: 86.2 kg

DRUGS (18)
  1. ALEVE [Suspect]
     Active Substance: NAPROXEN SODIUM
     Indication: INFLAMMATION
     Dosage: UNK
     Route: 048
     Dates: start: 20131125, end: 20131125
  2. VANCOMYCIN [Suspect]
     Active Substance: VANCOMYCIN
     Indication: DUODENITIS
     Dosage: UNK
     Route: 042
     Dates: start: 20131129, end: 20131129
  3. LEVAQUIN [Suspect]
     Active Substance: LEVOFLOXACIN
     Indication: BRONCHITIS
  4. LOTREL [Concomitant]
     Active Substance: AMLODIPINE BESYLATE\BENAZEPRIL HYDROCHLORIDE
     Dosage: UNK
     Dates: start: 200907
  5. ZOFRAN [Concomitant]
     Active Substance: ONDANSETRON HYDROCHLORIDE
     Dosage: 27
     Dates: start: 20131127, end: 20131210
  6. POTASSIUM PHOSPHATE DIBASIC [Concomitant]
     Dosage: UNK
     Dates: start: 20131129, end: 20131210
  7. AMITRIPTYLINE [Concomitant]
     Active Substance: AMITRIPTYLINE
     Dosage: UNK
     Dates: start: 201002
  8. PANTOPRAZOLE [Suspect]
     Active Substance: PANTOPRAZOLE SODIUM
     Indication: DUODENITIS
     Dosage: UNK
     Route: 048
     Dates: start: 20131129, end: 20131210
  9. OSELTAMIVIR [Concomitant]
     Active Substance: OSELTAMIVIR
     Dosage: UNK
     Dates: start: 20131129, end: 20131210
  10. LEVAQUIN [Suspect]
     Active Substance: LEVOFLOXACIN
     Indication: DUODENITIS
     Dosage: UNK
     Route: 048
     Dates: start: 20131126, end: 20131128
  11. ALEVE [Suspect]
     Active Substance: NAPROXEN SODIUM
     Indication: PYREXIA
     Dosage: UNK, PRN
  12. TUMS [Concomitant]
     Active Substance: CALCIUM CARBONATE
     Dosage: UNK
     Dates: start: 20131122
  13. PIPERACILLIN AND TAZOBACTAM [Suspect]
     Active Substance: PIPERACILLIN SODIUM\TAZOBACTAM SODIUM
     Indication: DUODENITIS
     Dosage: UNK
     Route: 042
     Dates: start: 20131129, end: 20131129
  14. LEVAQUIN [Suspect]
     Active Substance: LEVOFLOXACIN
     Indication: RESPIRATORY TRACT CONGESTION
     Dosage: UNK
     Route: 042
     Dates: start: 20131129, end: 20131210
  15. DOXAZOSIN [Concomitant]
     Active Substance: DOXAZOSIN\DOXAZOSIN MESYLATE
     Dosage: UNK
  16. CARDURA [Concomitant]
     Active Substance: DOXAZOSIN MESYLATE
     Dosage: UNK
     Dates: start: 200907
  17. ZANTAC [Concomitant]
     Active Substance: RANITIDINE HYDROCHLORIDE
     Dosage: UNK
     Dates: start: 20131120, end: 20131121
  18. VITAMIN D3 [Concomitant]
     Active Substance: CHOLECALCIFEROL
     Dosage: UNK
     Dates: start: 201212

REACTIONS (13)
  - Atelectasis [None]
  - Influenza A virus test positive [None]
  - Gastric polyps [None]
  - Pyrexia [None]
  - Pleural effusion [None]
  - Decreased appetite [Recovered/Resolved with Sequelae]
  - B-cell lymphoma recurrent [None]
  - Drug-induced liver injury [Recovered/Resolved with Sequelae]
  - Cough [None]
  - Erosive duodenitis [Recovered/Resolved]
  - Liver function test abnormal [Recovered/Resolved with Sequelae]
  - Abdominal pain [Recovered/Resolved with Sequelae]
  - Chronic gastritis [None]

NARRATIVE: CASE EVENT DATE: 20131127
